FAERS Safety Report 5136334-5 (Version None)
Quarter: 2006Q4

REPORT INFORMATION
  Report Type: 
  Country: None (occurrence: None)
  Receive Date: 20061027
  Receipt Date: 20061023
  Transmission Date: 20070319
  Serious: Yes (Other)
  Sender: FDA-Public Use
  Company Number: 2006AP05036

PATIENT
  Sex: Female

DRUGS (1)
  1. LOSEC [Suspect]
     Route: 048

REACTIONS (1)
  - HYPOMAGNESAEMIA [None]
